FAERS Safety Report 5194410-5 (Version None)
Quarter: 2006Q4

REPORT INFORMATION
  Report Type: 
  Country: None (occurrence: None)
  Receive Date: 20061228
  Receipt Date: 20061213
  Transmission Date: 20070319
  Serious: Yes (Hospitalization, Other)
  Sender: FDA-Public Use
  Company Number: BR-PFIZER INC-2006150688

PATIENT
  Sex: Female

DRUGS (2)
  1. LIPITOR [Suspect]
     Indication: DYSLIPIDAEMIA
     Route: 048
  2. SUSTRATE [Concomitant]
     Route: 048

REACTIONS (8)
  - ARTERIOSCLEROSIS CORONARY ARTERY [None]
  - HAEMOPTYSIS [None]
  - HEPATIC STEATOSIS [None]
  - HEPATITIS [None]
  - MYOCARDIAL INFARCTION [None]
  - RED BLOOD CELL COUNT DECREASED [None]
  - TENDONITIS [None]
  - VENOUS OCCLUSION [None]
